FAERS Safety Report 7383589-2 (Version None)
Quarter: 2011Q1

REPORT INFORMATION
  Report Type: 
  Country: None (occurrence: None)
  Receive Date: 20110330
  Receipt Date: 20110325
  Transmission Date: 20110831
  Serious: Yes (Hospitalization, Other)
  Sender: FDA-Public Use
  Company Number: GB-B.I. PHARMACEUTICALS,INC./RIDGEFIELD-2011-UK-00327UK

PATIENT
  Age: 56 Year
  Sex: Female

DRUGS (3)
  1. TERBUTALINE UDVS [Concomitant]
     Indication: CHRONIC OBSTRUCTIVE PULMONARY DISEASE
  2. TERBUTALINE UDVS [Concomitant]
     Indication: ASTHMA
  3. ATROVENT UDVS [Suspect]
     Indication: CHRONIC OBSTRUCTIVE PULMONARY DISEASE
     Route: 055

REACTIONS (3)
  - DRUG LABEL CONFUSION [None]
  - ATRIAL FIBRILLATION [None]
  - OVERDOSE [None]
